FAERS Safety Report 8820364 (Version 3)
Quarter: 2012Q4

REPORT INFORMATION
  Report Type: 
  Country: US (occurrence: US)
  Receive Date: 20121002
  Receipt Date: 20121217
  Transmission Date: 20130627
  Serious: Yes (Hospitalization, Disabling)
  Sender: FDA-Public Use
  Company Number: US-BAYER-2012-099520

PATIENT
  Age: 23 Year
  Sex: Female
  Weight: 49.89 kg

DRUGS (10)
  1. OCELLA [Suspect]
     Indication: CONTRACEPTION
     Dosage: UNK
     Dates: start: 2007, end: 2008
  2. NSAID^S [Concomitant]
     Dosage: UNK
     Dates: start: 200808
  3. LEXAPRO [Concomitant]
     Indication: DEPRESSION
     Dosage: UNK
     Dates: start: 2008, end: 2012
  4. FOLVITE [Concomitant]
     Dosage: UNK
     Dates: start: 2008, end: 2012
  5. TOPROL [Concomitant]
     Indication: HYPERTENSION
     Dosage: UNK
     Dates: start: 2008, end: 2011
  6. VITAMIN B12 [Concomitant]
     Indication: SLEEP LOSS
     Dosage: UNK
     Dates: start: 2008, end: 2012
  7. TRAZODONE [Concomitant]
     Indication: SLEEP LOSS
     Dosage: UNK
     Dates: start: 2008, end: 2012
  8. ADDERALL [Concomitant]
     Indication: ADHD
     Dosage: UNK
     Dates: start: 2008, end: 2012
  9. PRILOSEC [Concomitant]
     Indication: NAUSEA
     Dosage: UNK
     Dates: start: 2008, end: 2012
  10. LOW-OGESTREL [Concomitant]

REACTIONS (9)
  - Cerebrovascular accident [None]
  - Deep vein thrombosis [None]
  - Pain [None]
  - General physical health deterioration [None]
  - Emotional distress [None]
  - Injury [None]
  - Anhedonia [None]
  - Anxiety [None]
  - Pain [None]
